FAERS Safety Report 6643947-8 (Version None)
Quarter: 2010Q1

REPORT INFORMATION
  Report Type: 
  Country: None (occurrence: None)
  Receive Date: 20100317
  Receipt Date: 20100302
  Transmission Date: 20100710
  Serious: Yes (Hospitalization)
  Sender: FDA-Public Use
  Company Number: TUK2010A00031

PATIENT
  Age: 81 Year
  Sex: Male

DRUGS (9)
  1. ACTOS [Suspect]
     Indication: DIABETES MELLITUS
     Dosage: 30 MG (30 MG) ORAL
     Route: 048
     Dates: end: 20100217
  2. ACEBUTOLOL [Concomitant]
  3. AMITRIPTYLINE HYDROCHLORIDE [Concomitant]
  4. AMLODIPINE [Concomitant]
  5. ASPIRIN (ACNTYLSALICYLIC ACID) [Concomitant]
  6. FUROSEMIDE [Concomitant]
  7. GLICLAZIDE (GLICLAZIDE) [Concomitant]
  8. LISINOPRIL [Concomitant]
  9. ROSUVASTATIN (ROSUVASTATIN) [Concomitant]

REACTIONS (2)
  - ACUTE MYOCARDIAL INFARCTION [None]
  - LEFT VENTRICULAR FAILURE [None]
